FAERS Safety Report 16796628 (Version 1)
Quarter: 2019Q3

REPORT INFORMATION
  Report Type: Spontaneous
  Country: US (occurrence: US)
  Receive Date: 20190911
  Receipt Date: 20190911
  Transmission Date: 20191005
  Serious: No
  Sender: FDA-Public Use
  Company Number: US-JNJFOC-20190902882

PATIENT
  Age: 49 Year
  Sex: Male
  Weight: 74.91 kg

DRUGS (11)
  1. LIDOCAINE. [Concomitant]
     Active Substance: LIDOCAINE
     Indication: TOOTHACHE
  2. ASPRIN [Concomitant]
     Active Substance: ASPIRIN
     Route: 065
  3. EMTRICITABINE W/TENOFOVIR ALAFENAMIDE FUMARAT [Concomitant]
     Active Substance: EMTRICITABINE\TENOFOVIR
     Indication: HIV INFECTION
     Route: 065
  4. TIVICAY [Concomitant]
     Active Substance: DOLUTEGRAVIR SODIUM
     Route: 065
  5. CARVEDILOL. [Concomitant]
     Active Substance: CARVEDILOL
     Route: 065
  6. CHLORHEXIDINE [Concomitant]
     Active Substance: CHLORHEXIDINE
     Indication: TOOTHACHE
     Route: 065
  7. SPIRONOLACTONE. [Concomitant]
     Active Substance: SPIRONOLACTONE
     Route: 065
  8. XARELTO [Suspect]
     Active Substance: RIVAROXABAN
     Indication: PULMONARY THROMBOSIS
     Route: 048
     Dates: start: 20190822
  9. AMLODIPINE [Concomitant]
     Active Substance: AMLODIPINE BESYLATE
     Route: 065
  10. LISINOPRIL. [Concomitant]
     Active Substance: LISINOPRIL
  11. ATORVASTATIN [Concomitant]
     Active Substance: ATORVASTATIN
     Route: 065

REACTIONS (3)
  - Paraesthesia [Not Recovered/Not Resolved]
  - Blood urine present [Unknown]
  - Rash [Recovering/Resolving]

NARRATIVE: CASE EVENT DATE: 2019
